FAERS Safety Report 7251352-9 (Version None)
Quarter: 2011Q1

REPORT INFORMATION
  Report Type: 
  Country: None (occurrence: None)
  Receive Date: 20110119
  Receipt Date: 20110110
  Transmission Date: 20110831
  Serious: Yes (Hospitalization, Other)
  Sender: FDA-Public Use
  Company Number: JPI-P-011884

PATIENT
  Age: 39 Year
  Sex: Female
  Weight: 107.0489 kg

DRUGS (8)
  1. MULTIPLE UNSPECIFIED MEDICATIONS [Concomitant]
  2. XYREM [Suspect]
     Indication: CATAPLEXY
     Dosage: SEE IMAGE
     Route: 048
     Dates: start: 20080101, end: 20080101
  3. XYREM [Suspect]
     Indication: CATAPLEXY
     Dosage: SEE IMAGE
     Route: 048
     Dates: start: 20060101
  4. XYREM [Suspect]
     Indication: CATAPLEXY
     Dosage: SEE IMAGE
     Route: 048
     Dates: start: 20070901, end: 20071001
  5. XYREM [Suspect]
     Indication: CATAPLEXY
     Dosage: SEE IMAGE
     Route: 048
     Dates: start: 20090201, end: 20090101
  6. XYREM [Suspect]
     Indication: CATAPLEXY
     Dosage: SEE IMAGE
     Route: 048
     Dates: start: 20090101
  7. XYREM [Suspect]
     Indication: CATAPLEXY
     Dosage: SEE IMAGE
     Route: 048
     Dates: start: 20080101, end: 20090201
  8. XYREM [Suspect]
     Indication: CATAPLEXY
     Dosage: SEE IMAGE
     Route: 048
     Dates: start: 20071001, end: 20080101

REACTIONS (13)
  - SYSTEMIC LUPUS ERYTHEMATOSUS [None]
  - MUSCULOSKELETAL DISCOMFORT [None]
  - MIGRAINE [None]
  - POOR QUALITY SLEEP [None]
  - PAIN [None]
  - MUSCLE TWITCHING [None]
  - PAIN IN JAW [None]
  - ARTHRALGIA [None]
  - DISSOCIATIVE IDENTITY DISORDER [None]
  - NIGHT SWEATS [None]
  - PSORIATIC ARTHROPATHY [None]
  - NAUSEA [None]
  - SLEEP APNOEA SYNDROME [None]
